FAERS Safety Report 17591933 (Version 2)
Quarter: 2020Q1

REPORT INFORMATION
  Report Type: Report from Study
  Country: CA (occurrence: CA)
  Receive Date: 20200327
  Receipt Date: 20200330
  Transmission Date: 20200409
  Serious: Yes (Other)
  Sender: FDA-Public Use
  Company Number: CA-EISAI MEDICAL RESEARCH-EC-2019-064436

PATIENT
  Age: 77 Year
  Sex: Male

DRUGS (5)
  1. FYCOMPA [Suspect]
     Active Substance: PERAMPANEL
     Route: 048
     Dates: start: 2019, end: 201911
  2. FYCOMPA [Suspect]
     Active Substance: PERAMPANEL
     Indication: PARTIAL SEIZURES
     Route: 048
     Dates: start: 20191007, end: 201910
  3. FYCOMPA [Suspect]
     Active Substance: PERAMPANEL
     Route: 048
     Dates: start: 201910, end: 2019
  4. FYCOMPA [Suspect]
     Active Substance: PERAMPANEL
     Dosage: 2 MG ALTERNATING WITH 4 MG
     Route: 048
     Dates: start: 201911, end: 201911
  5. FYCOMPA [Suspect]
     Active Substance: PERAMPANEL
     Route: 048
     Dates: start: 20191204

REACTIONS (10)
  - Suicide attempt [Unknown]
  - Nightmare [Unknown]
  - Headache [Unknown]
  - Muscular weakness [Unknown]
  - Somnolence [Unknown]
  - Seizure [Unknown]
  - Gait disturbance [Unknown]
  - Oedema peripheral [Unknown]
  - Swelling face [Unknown]
  - Fatigue [Unknown]

NARRATIVE: CASE EVENT DATE: 2019
